FAERS Safety Report 5163880-0 (Version None)
Quarter: 2006Q4

REPORT INFORMATION
  Report Type: 
  Country: None (occurrence: None)
  Receive Date: 20061204
  Receipt Date: 20061101
  Transmission Date: 20070319
  Serious: Yes (Death)
  Sender: FDA-Public Use
  Company Number: JP-BRISTOL-MYERS SQUIBB COMPANY-13572458

PATIENT
  Age: 40 Year
  Sex: Female

DRUGS (9)
  1. ARIPIPRAZOLE [Suspect]
     Indication: SCHIZOPHRENIA
     Dosage: 6 MG/DAY INCREASED TO 12 MG/DAY THEN DECREASED BACK TO 6 MG/DAY
     Route: 048
     Dates: start: 20060907, end: 20061026
  2. SULPIRIDE [Suspect]
     Indication: SCHIZOPHRENIA
     Dosage: SULPIRIDE 200MG/300MG/400MG
     Route: 048
     Dates: end: 20061026
  3. QUETIAPINE FUMARATE [Concomitant]
     Indication: SCHIZOPHRENIA
     Route: 048
     Dates: start: 20060607, end: 20061026
  4. LEVOMEPROMAZINE MALEATE [Concomitant]
     Indication: SCHIZOPHRENIA
     Route: 048
     Dates: start: 20060626, end: 20061026
  5. ETIZOLAM [Concomitant]
     Indication: ANXIETY
     Route: 048
     Dates: start: 20060602, end: 20061026
  6. DIAZEPAM [Concomitant]
     Indication: ANXIETY
     Route: 048
     Dates: start: 20060615, end: 20061026
  7. FLUNITRAZEPAM [Concomitant]
  8. BROMPERIDOL [Concomitant]
     Indication: SCHIZOPHRENIA
     Route: 048
     Dates: start: 20060824, end: 20060921
  9. ZOLPIDEM TARTRATE [Concomitant]
     Indication: INSOMNIA
     Route: 048
     Dates: start: 20060615, end: 20061026

REACTIONS (2)
  - COMPLETED SUICIDE [None]
  - INSOMNIA [None]
